FAERS Safety Report 7685339-9 (Version None)
Quarter: 2011Q3

REPORT INFORMATION
  Report Type: 
  Country: None (occurrence: None)
  Receive Date: 20110816
  Receipt Date: 20110804
  Transmission Date: 20111222
  Serious: Yes (Hospitalization, Other)
  Sender: FDA-Public Use
  Company Number: US-BAYER-201034394NA

PATIENT
  Age: 50 Year
  Sex: Female
  Weight: 72.562 kg

DRUGS (5)
  1. YAZ [Suspect]
     Indication: CONTRACEPTION
     Dosage: UNK
     Dates: start: 20070301, end: 20070901
  2. ALLEGRA-D [FEXOFENADINE HYDROCHLORIDE,PSEUDOEPHEDRINE HYDROCHLORID [Concomitant]
     Dosage: UNK UNK, PRN
     Route: 048
  3. ONE-A-DAY [VIT C,B12,D2,B3,B6,RETINOL,B2,B1 MONONITR] [Concomitant]
     Dosage: UNK UNK, CONT
     Route: 048
  4. CLARITIN [Concomitant]
     Dosage: UNK UNK, PRN
     Route: 048
  5. FLONASE [Concomitant]
     Dosage: UNK UNK, CONT
     Route: 055

REACTIONS (4)
  - DYSPNOEA [None]
  - PULMONARY EMBOLISM [None]
  - CHOLECYSTECTOMY [None]
  - DEEP VEIN THROMBOSIS [None]
